FAERS Safety Report 7069485-9 (Version None)
Quarter: 2010Q4

REPORT INFORMATION
  Report Type: 
  Country: None (occurrence: None)
  Receive Date: 20101028
  Receipt Date: 20091221
  Transmission Date: 20110411
  Serious: No
  Sender: FDA-Public Use
  Company Number: US-WYE-H12748709

PATIENT
  Sex: Female

DRUGS (3)
  1. AMIODARONE HCL [Suspect]
     Dosage: DOSE UNKNOWN
     Route: 065
  2. CALCIUM [Concomitant]
     Dosage: DOSE UNKNOWN
     Route: 065
  3. LEVOXYL [Concomitant]
     Dosage: DOSE UNKNOWN
     Route: 065

REACTIONS (3)
  - COUGH [None]
  - FEELING ABNORMAL [None]
  - THYROID DISORDER [None]
